APPROVED DRUG PRODUCT: IPRATROPIUM BROMIDE
Active Ingredient: IPRATROPIUM BROMIDE
Strength: 0.042MG/SPRAY
Dosage Form/Route: SPRAY, METERED;NASAL
Application: A076155 | Product #001 | TE Code: AB
Applicant: APOTEX INC
Approved: Apr 18, 2003 | RLD: No | RS: No | Type: RX